FAERS Safety Report 25054676 (Version 1)
Quarter: 2025Q1

REPORT INFORMATION
  Report Type: Report from Study
  Country: US (occurrence: US)
  Receive Date: 20250308
  Receipt Date: 20250308
  Transmission Date: 20250409
  Serious: Yes (Hospitalization)
  Sender: ABBVIE
  Company Number: US-ABBVIE-6158390

PATIENT
  Age: 13 Year
  Sex: Female

DRUGS (1)
  1. SKYRIZI [Suspect]
     Active Substance: RISANKIZUMAB-RZAA
     Indication: Product used for unknown indication
     Route: 058
     Dates: start: 202409

REACTIONS (6)
  - Condition aggravated [Unknown]
  - Abdominal pain [Recovering/Resolving]
  - Vomiting [Unknown]
  - Weight decreased [Unknown]
  - Malnutrition [Unknown]
  - Incontinence [Unknown]

NARRATIVE: CASE EVENT DATE: 20240101
